FAERS Safety Report 25625833 (Version 3)
Quarter: 2025Q3

REPORT INFORMATION
  Report Type: Report from Study
  Country: US (occurrence: US)
  Receive Date: 20250731
  Receipt Date: 20250903
  Transmission Date: 20251021
  Serious: No
  Sender: SUNOVION
  Company Number: US-SMPA-2025SPA009312AA

PATIENT
  Age: 69 Year
  Sex: Male

DRUGS (10)
  1. ORGOVYX [Suspect]
     Active Substance: RELUGOLIX
     Indication: Prostate cancer
     Route: 048
  2. ATORVASTATIN [Concomitant]
     Active Substance: ATORVASTATIN
  3. BICALUTAMIDE [Concomitant]
     Active Substance: BICALUTAMIDE
  4. CALCIUM\VITAMIN D [Concomitant]
     Active Substance: CALCIUM\VITAMIN D
  5. GLIMEPIRIDE [Concomitant]
     Active Substance: GLIMEPIRIDE
  6. IBUPROFEN [Concomitant]
     Active Substance: IBUPROFEN
  7. LINZESS [Concomitant]
     Active Substance: LINACLOTIDE
  8. NAPROXEN [Concomitant]
     Active Substance: NAPROXEN
  9. Losartan k/hctz [Concomitant]
  10. CALCIUM CARBONATE\CHOLECALCIFEROL [Concomitant]
     Active Substance: CALCIUM CARBONATE\CHOLECALCIFEROL

REACTIONS (4)
  - Arthralgia [Unknown]
  - Bone pain [Unknown]
  - Hot flush [Unknown]
  - Incorrect dose administered [Recovered/Resolved]
